FAERS Safety Report 15116541 (Version 1)
Quarter: 2018Q3

REPORT INFORMATION
  Report Type: Spontaneous
  Country: FR (occurrence: FR)
  Receive Date: 20180706
  Receipt Date: 20180706
  Transmission Date: 20181010
  Serious: Yes (Death)
  Sender: FDA-Public Use
  Company Number: FR-009507513-1807FRA001060

PATIENT
  Age: 31 Year
  Sex: Male
  Weight: 95 kg

DRUGS (19)
  1. CUBICIN [Suspect]
     Active Substance: DAPTOMYCIN
     Indication: PROPHYLAXIS
     Dosage: 900 MG, QD
     Route: 042
     Dates: start: 20180529, end: 20180607
  2. METRONIDAZOLE. [Suspect]
     Active Substance: METRONIDAZOLE
     Indication: PROPHYLAXIS
     Dosage: 3 DF, QD
     Route: 042
     Dates: start: 20180518, end: 20180607
  3. ETOPOSIDE. [Suspect]
     Active Substance: ETOPOSIDE
     Indication: B-CELL LYMPHOMA
     Dosage: UNK
     Route: 042
     Dates: start: 20180524, end: 20180524
  4. EXACYL [Concomitant]
     Active Substance: TRANEXAMIC ACID
  5. MIDAZOLAM [Concomitant]
     Active Substance: MIDAZOLAM HYDROCHLORIDE
  6. METHYLPREDNISOLONE. [Concomitant]
     Active Substance: METHYLPREDNISOLONE
  7. ARACYTINE [Suspect]
     Active Substance: CYTARABINE
     Indication: B-CELL LYMPHOMA
     Dosage: UNK
     Route: 042
     Dates: start: 20180525, end: 20180526
  8. VANCOMYCINE SANDOZ [Suspect]
     Active Substance: VANCOMYCIN
     Indication: PROPHYLAXIS
     Dosage: 500 MG, QD
     Route: 042
     Dates: start: 20180518, end: 20180608
  9. NPLATE [Concomitant]
     Active Substance: ROMIPLOSTIM
  10. TRIMEBUTINE [Concomitant]
     Active Substance: TRIMEBUTINE
  11. FLUIMUCIL [Concomitant]
     Active Substance: ACETYLCYSTEINE
  12. SCOPOLAMINE [Concomitant]
     Active Substance: SCOPOLAMINE
  13. CILASTATIN SODIUM (+) IMIPENEM [Suspect]
     Active Substance: CILASTATIN SODIUM\IMIPENEM
     Indication: PROPHYLAXIS
     Dosage: 1500 MG, QD
     Route: 042
     Dates: start: 20180526, end: 20180607
  14. ONDANSETRON ACCORD [Suspect]
     Active Substance: ONDANSETRON
     Indication: NAUSEA
     Dosage: 8 MG, QD
     Route: 042
     Dates: start: 20180523, end: 20180606
  15. ZELITREX [Suspect]
     Active Substance: VALACYCLOVIR HYDROCHLORIDE
     Indication: PROPHYLAXIS
     Dosage: 5000 MG, QD
     Route: 048
     Dates: start: 20180525, end: 20180604
  16. HOLOXAN [Suspect]
     Active Substance: IFOSFAMIDE
     Indication: B-CELL LYMPHOMA
     Dosage: UNK
     Route: 042
     Dates: start: 20180525, end: 20180525
  17. GRANOCYTE [Concomitant]
     Active Substance: LENOGRASTIM
  18. ZOLEDRONIC ACID [Concomitant]
     Active Substance: ZOLEDRONIC ACID
  19. OXYCODONE [Concomitant]
     Active Substance: OXYCODONE

REACTIONS (1)
  - Hepatitis cholestatic [Fatal]

NARRATIVE: CASE EVENT DATE: 20180529
